FAERS Safety Report 6410215-9 (Version None)
Quarter: 2009Q4

REPORT INFORMATION
  Report Type: 
  Country: None (occurrence: None)
  Receive Date: 20091022
  Receipt Date: 20091008
  Transmission Date: 20100525
  Serious: Yes (Hospitalization)
  Sender: FDA-Public Use
  Company Number: PHHY2009CA43861

PATIENT

DRUGS (2)
  1. CO-DIOVAN T32564+ [Suspect]
     Indication: HYPERTENSION
     Dosage: 320/12.5 MG
  2. DILANTIN                                /CAN/ [Suspect]

REACTIONS (1)
  - THERAPEUTIC AGENT TOXICITY [None]
